FAERS Safety Report 16449372 (Version 1)
Quarter: 2019Q2

REPORT INFORMATION
  Report Type: Spontaneous
  Country: US (occurrence: US)
  Receive Date: 20190619
  Receipt Date: 20190619
  Transmission Date: 20190711
  Serious: No
  Sender: FDA-Public Use
  Company Number: US-GLAXOSMITHKLINE-US2019AMR109190

PATIENT
  Age: 67 Year
  Sex: Female

DRUGS (1)
  1. BREO ELLIPTA [Suspect]
     Active Substance: FLUTICASONE FUROATE\VILANTEROL TRIFENATATE
     Indication: PRODUCT USED FOR UNKNOWN INDICATION
     Dosage: UNK
     Route: 055
     Dates: start: 2018

REACTIONS (8)
  - Malaise [Unknown]
  - Condition aggravated [Unknown]
  - Headache [Unknown]
  - Dyspnoea [Unknown]
  - Nasal congestion [Unknown]
  - Hypersensitivity [Unknown]
  - Rhinorrhoea [Unknown]
  - Wheezing [Unknown]

NARRATIVE: CASE EVENT DATE: 20190614
